FAERS Safety Report 8103924-7 (Version None)
Quarter: 2012Q1

REPORT INFORMATION
  Report Type: 
  Country: None (occurrence: None)
  Receive Date: 20120201
  Receipt Date: 20120124
  Transmission Date: 20120608
  Serious: Yes (Hospitalization)
  Sender: FDA-Public Use
  Company Number: US-BAYER-2011-075346

PATIENT
  Age: 23 Year
  Sex: Female
  Weight: 70.295 kg

DRUGS (3)
  1. PHENTERMINE [Concomitant]
     Indication: WEIGHT DECREASED
     Dosage: UNK
     Dates: start: 20000101, end: 20100101
  2. YASMIN [Suspect]
     Dosage: UNK
     Dates: start: 20090801
  3. YAZ [Suspect]
     Dosage: UNK
     Dates: start: 20090801

REACTIONS (3)
  - GALLBLADDER INJURY [None]
  - PAIN [None]
  - INJURY [None]
